FAERS Safety Report 8804832 (Version 1)
Quarter: 2012Q4

REPORT INFORMATION
  Report Type: Spontaneous
  Country: US (occurrence: None)
  Receive Date: 20120917
  Receipt Date: 20120917
  Transmission Date: 20130627
  Serious: Yes (Hospitalization)
  Sender: FDA-Public Use
  Company Number: None

PATIENT
  Age: 54 Year
  Sex: Male

DRUGS (2)
  1. BACTRIM [Suspect]
     Dates: start: 20091124, end: 20091203
  2. ISONIAZID [Suspect]
     Dates: start: 20090805, end: 20100205

REACTIONS (5)
  - Blood bilirubin increased [None]
  - Drug-induced liver injury [None]
  - Renal failure [None]
  - Aspartate aminotransferase increased [None]
  - Alanine aminotransferase increased [None]
